FAERS Safety Report 5196440-6 (Version None)
Quarter: 2006Q4

REPORT INFORMATION
  Report Type: 
  Country: None (occurrence: None)
  Receive Date: 20061226
  Receipt Date: 20061214
  Transmission Date: 20070319
  Serious: Yes (Hospitalization)
  Sender: FDA-Public Use
  Company Number: S06-FRA-04961-01

PATIENT
  Age: 85 Year
  Sex: Female

DRUGS (4)
  1. CITALOPRAM HYDROBROMIDE [Suspect]
     Dosage: 20 MG TID PO
     Route: 048
  2. CITALOPRAM HYDROBROMIDE [Suspect]
     Dosage: 20 MG QD PO
     Route: 048
     Dates: end: 20060628
  3. HYPERIUM (RILMENIDINE) [Suspect]
     Dates: end: 20060623
  4. RAMIPRIL [Concomitant]

REACTIONS (4)
  - HYPERTENSIVE CRISIS [None]
  - HYPONATRAEMIA [None]
  - LOSS OF CONSCIOUSNESS [None]
  - MALAISE [None]
